FAERS Safety Report 6106119-1 (Version None)
Quarter: 2009Q1

REPORT INFORMATION
  Report Type: 
  Country: None (occurrence: None)
  Receive Date: 20090306
  Receipt Date: 20090225
  Transmission Date: 20090719
  Serious: Yes (Other)
  Sender: FDA-Public Use
  Company Number: PHBS2009US00971

PATIENT
  Age: 60 Year
  Sex: Male

DRUGS (5)
  1. METOPROLOL [Suspect]
     Indication: HYPERTENSION
     Dosage: 75 MG, BID
  2. METOPROLOL [Suspect]
     Dosage: 50 MG/DAY
  3. AMLODIPINE [Concomitant]
     Indication: HYPERTENSION
     Dosage: 20 MG/DAY
  4. VALSARTAN [Concomitant]
     Dosage: 160 MG, BID
  5. HYDROCHLOROTHIAZIDE [Concomitant]
     Dosage: 12.5 MG, BID

REACTIONS (3)
  - PRESYNCOPE [None]
  - SINUS ARREST [None]
  - SYNCOPE [None]
